FAERS Safety Report 5125589-9 (Version None)
Quarter: 2006Q4

REPORT INFORMATION
  Report Type: 
  Country: None (occurrence: None)
  Receive Date: 20061012
  Receipt Date: 20061002
  Transmission Date: 20070319
  Serious: Yes (Hospitalization, Other)
  Sender: FDA-Public Use
  Company Number: SE-JNJFOC-20061000505

PATIENT
  Sex: Female

DRUGS (6)
  1. REMICADE [Suspect]
     Indication: MUSCULOSKELETAL PAIN
     Route: 042
  2. METHOTREXATE [Suspect]
     Indication: RHEUMATOID ARTHRITIS
     Route: 065
  3. FOLACIN [Concomitant]
     Route: 065
  4. PREDNISOLONE [Concomitant]
     Route: 065
  5. PROPRANOLOL [Concomitant]
     Route: 065
  6. TROMBYL [Concomitant]
     Route: 065

REACTIONS (1)
  - DIFFUSE LARGE B-CELL LYMPHOMA [None]
